FAERS Safety Report 9620073 (Version 2)
Quarter: 2013Q4

REPORT INFORMATION
  Report Type: Spontaneous
  Country: AR (occurrence: AR)
  Receive Date: 20131014
  Receipt Date: 20131024
  Transmission Date: 20140711
  Serious: Yes (Hospitalization, Other)
  Sender: FDA-Public Use
  Company Number: AR-BAYER-2013-121707

PATIENT
  Age: 40 Year
  Sex: Female

DRUGS (5)
  1. DIANE 35 [Suspect]
     Indication: ACNE
     Route: 048
  2. DIANE 35 [Suspect]
     Indication: ALOPECIA
  3. DIANE 35 [Suspect]
     Indication: OVARIAN DISORDER
  4. YASMIN [Suspect]
     Route: 048
  5. YASMINELLE [Suspect]

REACTIONS (5)
  - Haemorrhage [Recovered/Resolved]
  - Blood pressure increased [Recovered/Resolved]
  - Nausea [None]
  - Visual acuity reduced [Recovered/Resolved]
  - Migraine with aura [Not Recovered/Not Resolved]
